FAERS Safety Report 5110105-8 (Version None)
Quarter: 2006Q3

REPORT INFORMATION
  Report Type: 
  Country: None (occurrence: None)
  Receive Date: 20060918
  Receipt Date: 20060907
  Transmission Date: 20061208
  Serious: Yes (Other)
  Sender: FDA-Public Use
  Company Number: B0437841A

PATIENT
  Age: 36 Year
  Sex: Male

DRUGS (3)
  1. EPIVIR [Suspect]
     Indication: HIV INFECTION
     Dates: start: 20030901
  2. RETROVIR [Suspect]
     Indication: HIV INFECTION
  3. LOPINAVIR + RITONAVIR (LOPINAVIR + RITONAVIR) [Suspect]
     Indication: HIV INFECTION

REACTIONS (9)
  - BLOOD LACTATE DEHYDROGENASE INCREASED [None]
  - C-REACTIVE PROTEIN INCREASED [None]
  - IMMUNE RECONSTITUTION SYNDROME [None]
  - NEUTROPHIL PERCENTAGE INCREASED [None]
  - PLATELET COUNT DECREASED [None]
  - PROTHROMBIN TIME SHORTENED [None]
  - RED BLOOD CELL SEDIMENTATION RATE INCREASED [None]
  - SUBCUTANEOUS ABSCESS [None]
  - TRANSAMINASES INCREASED [None]
